FAERS Safety Report 4282181-6 (Version None)
Quarter: 2004Q1

REPORT INFORMATION
  Report Type: 
  Country: None (occurrence: None)
  Receive Date: 20040130
  Receipt Date: 20010208
  Transmission Date: 20041129
  Serious: Yes (Hospitalization, Disabling, Other)
  Sender: FDA-Public Use
  Company Number: US-GLAXOSMITHKLINE-A0139855A

PATIENT
  Sex: Male

DRUGS (3)
  1. WELLBUTRIN SR [Suspect]
     Route: 048
     Dates: start: 19970101, end: 19970101
  2. BUSPAR [Concomitant]
  3. SEDATIVE(UNKNOWN) [Concomitant]

REACTIONS (7)
  - BRAIN DAMAGE [None]
  - CARDIAC ARREST [None]
  - DROWNING [None]
  - DYSARTHRIA [None]
  - GRAND MAL CONVULSION [None]
  - MEMORY IMPAIRMENT [None]
  - MOTOR DYSFUNCTION [None]
